FAERS Safety Report 8428885-2 (Version None)
Quarter: 2012Q2

REPORT INFORMATION
  Report Type: 
  Country: None (occurrence: None)
  Receive Date: 20120612
  Receipt Date: 20120608
  Transmission Date: 20120825
  Serious: Yes (Hospitalization)
  Sender: FDA-Public Use
  Company Number: US-PFIZER INC-2012138691

PATIENT
  Sex: Male
  Weight: 108 kg

DRUGS (2)
  1. SUTENT [Suspect]
     Indication: METASTASIS
  2. SUTENT [Suspect]
     Indication: PELVIC NEOPLASM
     Dosage: UNK
     Route: 048
     Dates: start: 20120430

REACTIONS (7)
  - DIARRHOEA [None]
  - VOMITING [None]
  - HYPOPHAGIA [None]
  - GAIT DISTURBANCE [None]
  - PAIN [None]
  - NAUSEA [None]
  - WEIGHT DECREASED [None]
